FAERS Safety Report 7690001-2 (Version None)
Quarter: 2011Q3

REPORT INFORMATION
  Report Type: 
  Country: None (occurrence: None)
  Receive Date: 20110818
  Receipt Date: 20080929
  Transmission Date: 20111222
  Serious: No
  Sender: FDA-Public Use
  Company Number: 2008BI025526

PATIENT
  Age: 56 Year
  Sex: Female

DRUGS (1)
  1. TYSABRI [Suspect]
     Indication: MULTIPLE SCLEROSIS
     Route: 042
     Dates: start: 20080811

REACTIONS (5)
  - ARTHRALGIA [None]
  - MYALGIA [None]
  - ABDOMINAL PAIN UPPER [None]
  - SPONDYLITIS [None]
  - DEPRESSION [None]
